FAERS Safety Report 19750994 (Version 2)
Quarter: 2023Q1

REPORT INFORMATION
  Report Type: Spontaneous
  Country: CH (occurrence: CH)
  Receive Date: 20210826
  Receipt Date: 20230209
  Transmission Date: 20230417
  Serious: Yes (Other)
  Sender: FDA-Public Use
  Company Number: DE-NOVARTISPH-NVSC2021DE187473

PATIENT
  Age: 6 Month
  Sex: Male

DRUGS (3)
  1. EVEROLIMUS [Suspect]
     Active Substance: EVEROLIMUS
     Indication: Right ventricle outflow tract obstruction
     Dosage: 0.2 MG/KG, QD
     Route: 065
  2. EVEROLIMUS [Suspect]
     Active Substance: EVEROLIMUS
     Indication: Left ventricle outflow tract obstruction
  3. EVEROLIMUS [Suspect]
     Active Substance: EVEROLIMUS
     Indication: Cardiac failure

REACTIONS (3)
  - Mitral valve incompetence [Recovering/Resolving]
  - Rash pruritic [Unknown]
  - Off label use [Unknown]
